FAERS Safety Report 7937975-X (Version None)
Quarter: 2011Q4

REPORT INFORMATION
  Report Type: 
  Country: None (occurrence: None)
  Receive Date: 20111123
  Receipt Date: 20111115
  Transmission Date: 20120403
  Serious: Yes (Hospitalization, Other)
  Sender: FDA-Public Use
  Company Number: US-CELGENEUS-163-21880-11092596

PATIENT
  Sex: Male

DRUGS (10)
  1. HYDROMORPHONE HCL [Concomitant]
     Indication: PAIN
     Dosage: 1 TABLET
     Route: 048
  2. SIMVASTATIN [Concomitant]
     Dosage: 40 MILLIGRAM
     Route: 048
  3. LISINOPRIL [Concomitant]
     Dosage: 10 MILLIGRAM
     Route: 048
  4. ERGOCALCIFEROL, VITAMIN D [Concomitant]
     Dosage: 1000 IU (INTERNATIONAL UNIT)
     Route: 048
  5. FINASTERIDE [Concomitant]
     Dosage: 5 MILLIGRAM
     Route: 048
  6. SENNA-DOCUSATE [Concomitant]
     Indication: CONSTIPATION PROPHYLAXIS
     Dosage: 8.6-50 MG
     Route: 048
  7. ALPRAZOLAM [Concomitant]
     Dosage: .25 MILLIGRAM
     Route: 048
  8. ACETAMINOPHEN [Concomitant]
     Indication: PAIN
     Dosage: 2 TABLET
     Route: 048
  9. REVLIMID [Suspect]
     Indication: MULTIPLE MYELOMA
     Dosage: 10 MILLIGRAM
     Route: 048
     Dates: start: 20110502
  10. HEPARIN [Concomitant]
     Dosage: 5 MLS
     Route: 041

REACTIONS (1)
  - TRANSITIONAL CELL CANCER OF THE RENAL PELVIS AND URETER [None]
